FAERS Safety Report 19727259 (Version 6)
Quarter: 2021Q4

REPORT INFORMATION
  Report Type: Report from Study
  Country: US (occurrence: US)
  Receive Date: 20210819
  Receipt Date: 20211022
  Transmission Date: 20220304
  Serious: Yes (Hospitalization, Other)
  Sender: FDA-Public Use
  Company Number: US-NOVARTISPH-NVSC2021US186592

PATIENT
  Age: 81 Year
  Sex: Male

DRUGS (1)
  1. ENTRESTO [Suspect]
     Active Substance: SACUBITRIL\VALSARTAN
     Indication: Product used for unknown indication
     Dosage: 1 DF, BID (24/26 MG)
     Route: 048
     Dates: start: 20210804

REACTIONS (8)
  - Heart rate irregular [Recovered/Resolved]
  - Lung disorder [Recovering/Resolving]
  - Decreased activity [Recovering/Resolving]
  - Dizziness [Recovered/Resolved]
  - Therapeutic response unexpected [Recovering/Resolving]
  - Nervousness [Recovering/Resolving]
  - Agitation [Recovering/Resolving]
  - Irritability [Unknown]

NARRATIVE: CASE EVENT DATE: 20210805
